FAERS Safety Report 9120164 (Version 1)
Quarter: 2013Q1

REPORT INFORMATION
  Report Type: Report from Study
  Country: GB (occurrence: GB)
  Receive Date: 20130226
  Receipt Date: 20130226
  Transmission Date: 20140127
  Serious: Yes (Disabling, Other)
  Sender: FDA-Public Use
  Company Number: GB-JNJFOC-20130210347

PATIENT
  Sex: Male

DRUGS (2)
  1. ABIRATERONE [Suspect]
     Indication: PROSTATE CANCER METASTATIC
     Route: 065
  2. RADIATION THERAPY [Concomitant]
     Indication: PROSTATE CANCER METASTATIC
     Route: 065

REACTIONS (3)
  - Local swelling [Unknown]
  - Abasia [Unknown]
  - Aphagia [Unknown]
